FAERS Safety Report 9345433 (Version 1)
Quarter: 2013Q2

REPORT INFORMATION
  Report Type: Spontaneous
  Country: TR (occurrence: TR)
  Receive Date: 20130613
  Receipt Date: 20130613
  Transmission Date: 20140414
  Serious: Yes (Other)
  Sender: FDA-Public Use
  Company Number: TR-ROCHE-1233709

PATIENT
  Age: 48 Year
  Sex: Female

DRUGS (6)
  1. CAPECITABINE [Suspect]
     Indication: BREAST CANCER METASTATIC
     Dosage: DAYS 1-14, REPEATED EVERY 3 WEEKS
     Route: 065
     Dates: start: 201208
  2. CAPECITABINE [Interacting]
     Indication: BREAST CANCER
  3. PHENYTOIN [Interacting]
     Indication: CONVULSION PROPHYLAXIS
     Route: 065
  4. DEXAMETHASONE [Concomitant]
     Route: 048
  5. LANSOPRAZOLE [Concomitant]
     Route: 065
  6. ANASTROZOLE [Concomitant]
     Indication: BREAST CANCER
     Route: 065
     Dates: start: 201204

REACTIONS (1)
  - Toxicity to various agents [Recovered/Resolved]
